FAERS Safety Report 8494353-5 (Version None)
Quarter: 2012Q2

REPORT INFORMATION
  Report Type: 
  Country: None (occurrence: None)
  Receive Date: 20120628
  Receipt Date: 20120619
  Transmission Date: 20120825
  Serious: Yes (Hospitalization)
  Sender: FDA-Public Use
  Company Number: 2012SP034129

PATIENT
  Age: 31 Year
  Sex: Female

DRUGS (3)
  1. AMOXICILLIN BASE [Concomitant]
  2. CERAZETTE (DESOGESTREL/00754001/) [Suspect]
     Indication: CONTRACEPTION
     Dosage: 1 DF;QD;PO
     Route: 048
     Dates: start: 20120418
  3. SULFASALAZINE [Suspect]
     Indication: SPONDYLITIS
     Dosage: PO
     Route: 048
     Dates: start: 20120418, end: 20120513

REACTIONS (7)
  - CELL DEATH [None]
  - LICHENOID KERATOSIS [None]
  - DRUG RASH WITH EOSINOPHILIA AND SYSTEMIC SYMPTOMS [None]
  - EPIDERMAL NECROSIS [None]
  - HEAVY EXPOSURE TO ULTRAVIOLET LIGHT [None]
  - SPONDYLITIS [None]
  - LIVER DISORDER [None]
